FAERS Safety Report 8392383-5 (Version None)
Quarter: 2012Q2

REPORT INFORMATION
  Report Type: 
  Country: None (occurrence: None)
  Receive Date: 20120529
  Receipt Date: 20120523
  Transmission Date: 20120825
  Serious: Yes (Death, Other)
  Sender: FDA-Public Use
  Company Number: DE-ACTELION-A-US2012-66303

PATIENT

DRUGS (4)
  1. ALDACTONE [Concomitant]
  2. DILTIAZEM [Concomitant]
  3. CORASPIN [Concomitant]
  4. VENTAVIS [Suspect]
     Indication: PULMONARY HYPERTENSION
     Dosage: UNK
     Route: 055
     Dates: start: 20100528

REACTIONS (1)
  - MYOCARDIAL INFARCTION [None]
